FAERS Safety Report 9355420 (Version 1)
Quarter: 2013Q2

REPORT INFORMATION
  Report Type: Spontaneous
  Country: US (occurrence: None)
  Receive Date: 20130618
  Receipt Date: 20130618
  Transmission Date: 20140414
  Serious: Yes (Hospitalization)
  Sender: FDA-Public Use
  Company Number: None

PATIENT
  Age: 1 Year
  Sex: Female
  Weight: 10.3 kg

DRUGS (2)
  1. CARBOPLATIN [Suspect]
     Dates: end: 20130531
  2. THIOTEPA [Suspect]
     Dates: end: 20130601

REACTIONS (5)
  - Irritability [None]
  - Pyrexia [None]
  - Hypotension [None]
  - Blood culture positive [None]
  - Klebsiella test positive [None]
